FAERS Safety Report 9932667 (Version 1)
Quarter: 2014Q1

REPORT INFORMATION
  Report Type: Spontaneous
  Country: US (occurrence: US)
  Receive Date: 20140228
  Receipt Date: 20140228
  Transmission Date: 20141002
  Serious: No
  Sender: FDA-Public Use
  Company Number: US-GLAXOSMITHKLINE-A1025054A

PATIENT
  Age: 54 Year
  Sex: Female

DRUGS (2)
  1. LAMOTRIGINE [Suspect]
     Indication: AFFECTIVE DISORDER
     Dosage: 200MG PER DAY
     Route: 048
     Dates: start: 20130227
  2. VYVANSE [Concomitant]

REACTIONS (2)
  - Myalgia [Not Recovered/Not Resolved]
  - Nightmare [Unknown]
